FAERS Safety Report 4388123-7 (Version None)
Quarter: 2004Q2

REPORT INFORMATION
  Report Type: 
  Country: None (occurrence: None)
  Receive Date: 20040624
  Receipt Date: 20040615
  Transmission Date: 20050107
  Serious: Yes (Hospitalization, Other)
  Sender: FDA-Public Use
  Company Number: 200410149BBE

PATIENT
  Age: 66 Year
  Sex: Female
  Weight: 85.2762 kg

DRUGS (2)
  1. GAMUNEX [Suspect]
     Indication: DEMYELINATING POLYNEUROPATHY
     Dosage: 80 G, Q1MON, INTRAVENOUS
     Route: 042
     Dates: start: 20040602
  2. GAMUNEX [Suspect]
     Indication: DEMYELINATING POLYNEUROPATHY
     Dosage: 80 G, Q1MON, INTRAVENOUS
     Route: 042
     Dates: start: 20040603

REACTIONS (10)
  - CARDIOMEGALY [None]
  - CHRONIC OBSTRUCTIVE AIRWAYS DISEASE [None]
  - DIZZINESS [None]
  - HALLUCINATION [None]
  - HEADACHE [None]
  - NAUSEA [None]
  - NEUROPATHY [None]
  - PARAPROTEINAEMIA [None]
  - PNEUMONIA [None]
  - SPEECH DISORDER [None]
